FAERS Safety Report 22256413 (Version 1)
Quarter: 2023Q2

REPORT INFORMATION
  Report Type: Spontaneous
  Country: US (occurrence: US)
  Receive Date: 20230426
  Receipt Date: 20230426
  Transmission Date: 20230722
  Serious: No
  Sender: FDA-Public Use
  Company Number: US-ABBVIE-4725224

PATIENT
  Age: 79 Year
  Sex: Female

DRUGS (1)
  1. HUMIRA [Suspect]
     Active Substance: ADALIMUMAB
     Indication: Rheumatoid arthritis
     Dosage: FORM STRENGTH  40 MILLIGRAM
     Route: 058
     Dates: start: 20230119

REACTIONS (3)
  - Incorrect dose administered [Not Recovered/Not Resolved]
  - Device issue [Not Recovered/Not Resolved]
  - Injection site haemorrhage [Unknown]

NARRATIVE: CASE EVENT DATE: 20230407
